APPROVED DRUG PRODUCT: MYCOPHENOLATE MOFETIL
Active Ingredient: MYCOPHENOLATE MOFETIL
Strength: 500MG
Dosage Form/Route: TABLET;ORAL
Application: A204076 | Product #001 | TE Code: AB
Applicant: ZHEJIANG HISUN PHARMACEUTICAL CO LTD
Approved: Nov 16, 2017 | RLD: No | RS: No | Type: RX